FAERS Safety Report 4313153-0 (Version None)
Quarter: 2004Q1

REPORT INFORMATION
  Report Type: 
  Country: None (occurrence: None)
  Receive Date: 20040304
  Receipt Date: 20040212
  Transmission Date: 20041129
  Serious: Yes (Hospitalization)
  Sender: FDA-Public Use
  Company Number: EWC040238154

PATIENT
  Age: 65 Year
  Sex: Female

DRUGS (3)
  1. EVISTA [Suspect]
     Indication: OSTEOPOROSIS POSTMENOPAUSAL
     Dosage: 60 MG/1 DAY
     Dates: start: 20021024, end: 20021120
  2. CO-RENITEC [Concomitant]
  3. RISPERDAL [Concomitant]

REACTIONS (1)
  - BREAST CANCER FEMALE [None]
